FAERS Safety Report 17659346 (Version 1)
Quarter: 2020Q2

REPORT INFORMATION
  Report Type: Spontaneous
  Country: JP (occurrence: JP)
  Receive Date: 20200413
  Receipt Date: 20200413
  Transmission Date: 20200713
  Serious: Yes (Hospitalization, Other)
  Sender: FDA-Public Use
  Company Number: JP-ROCHE-2580576

PATIENT
  Age: 76 Year
  Sex: Female
  Weight: 57 kg

DRUGS (11)
  1. XELODA [Suspect]
     Active Substance: CAPECITABINE
     Indication: COLON CANCER
     Dosage: DOSE INTERVAL UNCERTAINTY
     Route: 048
     Dates: start: 20191021, end: 20191119
  2. DECADRON [Concomitant]
     Active Substance: DEXAMETHASONE
     Dosage: AFTER THE BREAKFAST
     Route: 048
     Dates: start: 20191021, end: 20191022
  3. LYRICA [Concomitant]
     Active Substance: PREGABALIN
     Dosage: AFTER THE SUPPER DAYTIME IN THE MORNING
     Route: 048
  4. METHYCOBAL [Concomitant]
     Active Substance: METHYLCOBALAMIN
     Dosage: AFTER THE SUPPER DAYTIME IN THE MORNING
     Route: 048
  5. DECADRON [Concomitant]
     Active Substance: DEXAMETHASONE
     Dosage: AFTER THE BREAKFAST
     Route: 048
     Dates: start: 20191112, end: 20191113
  6. NIFEDIPINE. [Concomitant]
     Active Substance: NIFEDIPINE
     Dosage: AFTER THE MEAL IN THE MORNING AND EVENING
     Route: 048
     Dates: end: 20191120
  7. LAGNOS [Concomitant]
     Dosage: AFTER THE SUPPER DAYTIME IN THE MORNING
     Route: 048
     Dates: end: 20191120
  8. AVASTIN [Suspect]
     Active Substance: BEVACIZUMAB
     Indication: COLON CANCER
     Dosage: DOSAGE IS UNCERTAIN.
     Route: 041
     Dates: start: 20191021
  9. OXALIPLATIN. [Suspect]
     Active Substance: OXALIPLATIN
     Indication: COLON CANCER
     Dosage: DOSE INTERVAL UNCERTAINTY
     Route: 041
     Dates: start: 20191021, end: 20191111
  10. LAFUTIDINE [Concomitant]
     Active Substance: LAFUTIDINE
     Dosage: AFTER THE BREAKFAST
     Route: 048
  11. LORAZEPAM. [Concomitant]
     Active Substance: LORAZEPAM
     Dosage: BEFORE RETIRING
     Route: 048

REACTIONS (5)
  - Palmar-plantar erythrodysaesthesia syndrome [Recovering/Resolving]
  - Impaired healing [Unknown]
  - Ascites [Unknown]
  - Paronychia [Unknown]
  - Diarrhoea [Recovering/Resolving]

NARRATIVE: CASE EVENT DATE: 20191111
